FAERS Safety Report 5832230-6 (Version None)
Quarter: 2008Q3

REPORT INFORMATION
  Report Type: 
  Country: None (occurrence: None)
  Receive Date: 20080804
  Receipt Date: 20080728
  Transmission Date: 20090109
  Serious: Yes (Other)
  Sender: FDA-Public Use
  Company Number: KR-JNJFOC-20080706581

PATIENT
  Age: 48 Year
  Sex: Female

DRUGS (2)
  1. TYLENOL (CAPLET) [Suspect]
     Indication: CHEST PAIN
     Route: 048
  2. TYLENOL (CAPLET) [Suspect]
     Indication: OROPHARYNGEAL PAIN
     Dosage: FOR 7 DAYS
     Route: 048

REACTIONS (4)
  - HEPATIC ENZYME INCREASED [None]
  - HYPERTHERMIA [None]
  - LYMPHADENITIS [None]
  - PLATELET COUNT DECREASED [None]
